FAERS Safety Report 25979582 (Version 1)
Quarter: 2025Q4

REPORT INFORMATION
  Report Type: Report from Study
  Country: US (occurrence: US)
  Receive Date: 20251030
  Receipt Date: 20251030
  Transmission Date: 20260117
  Serious: Yes (Other)
  Sender: ABBVIE
  Company Number: US-ABBVIE-6520634

PATIENT
  Age: 49 Year
  Sex: Female

DRUGS (2)
  1. SKYRIZI [Suspect]
     Active Substance: RISANKIZUMAB-RZAA
     Indication: Psoriasis
     Route: 058
  2. SKYRIZI [Suspect]
     Active Substance: RISANKIZUMAB-RZAA
     Route: 058

REACTIONS (8)
  - Necrotising fasciitis [Recovering/Resolving]
  - Therapeutic product effect decreased [Not Recovered/Not Resolved]
  - Headache [Not Recovered/Not Resolved]
  - Unevaluable event [Unknown]
  - Ulcer [Unknown]
  - Abdominal discomfort [Unknown]
  - Middle insomnia [Unknown]
  - Hypoaesthesia [Not Recovered/Not Resolved]

NARRATIVE: CASE EVENT DATE: 20230601
